FAERS Safety Report 6609928-5 (Version None)
Quarter: 2010Q1

REPORT INFORMATION
  Report Type: 
  Country: None (occurrence: None)
  Receive Date: 20100302
  Receipt Date: 20100221
  Transmission Date: 20100710
  Serious: No
  Sender: FDA-Public Use
  Company Number: US-B.I. PHARMACEUTICALS,INC./RIDGEFIELD-2010-BP-02148BP

PATIENT
  Sex: Male

DRUGS (6)
  1. SPIRIVA [Suspect]
     Indication: CHRONIC OBSTRUCTIVE PULMONARY DISEASE
     Dosage: 18 MCG
     Route: 055
     Dates: start: 20090101
  2. KLONOPIN [Concomitant]
     Indication: ANXIETY
  3. ISOSORBIDE [Concomitant]
     Indication: CARDIAC FAILURE CONGESTIVE
  4. LISINOPRIL [Concomitant]
     Indication: HYPERTENSION
  5. ASPIRIN [Concomitant]
     Dosage: 81 MG
  6. COREG [Concomitant]
     Indication: HYPERTENSION

REACTIONS (1)
  - PROSTATIC SPECIFIC ANTIGEN INCREASED [None]
